FAERS Safety Report 6054435-4 (Version None)
Quarter: 2009Q1

REPORT INFORMATION
  Report Type: 
  Country: None (occurrence: None)
  Receive Date: 20090127
  Receipt Date: 20090122
  Transmission Date: 20090719
  Serious: No
  Sender: FDA-Public Use
  Company Number: US-B.I. PHARMACEUTICALS,INC./RIDGEFIELD-2008-BP-18861BP

PATIENT
  Age: 67 Year
  Sex: Male

DRUGS (6)
  1. FLOMAX [Suspect]
     Indication: BENIGN PROSTATIC HYPERPLASIA
     Dosage: .4MG
     Route: 048
     Dates: start: 20081211
  2. FLOMAX [Suspect]
     Indication: NOCTURIA
  3. LEVOXYL [Concomitant]
  4. TOPROL-XL [Concomitant]
  5. LISINOPRIL [Concomitant]
  6. ASPIRIN [Concomitant]

REACTIONS (2)
  - DRUG EFFECT DECREASED [None]
  - EJACULATION FAILURE [None]
